FAERS Safety Report 16349187 (Version 2)
Quarter: 2019Q2

REPORT INFORMATION
  Report Type: Spontaneous
  Country: US (occurrence: US)
  Receive Date: 20190523
  Receipt Date: 20190627
  Transmission Date: 20190711
  Serious: Yes (Hospitalization, Other)
  Sender: FDA-Public Use
  Company Number: US-BOIRON INC.-2019BOR00058

PATIENT
  Sex: Female
  Weight: 71.2 kg

DRUGS (5)
  1. EXCEDRIN [Concomitant]
     Active Substance: ACETAMINOPHEN\ASPIRIN\CAFFEINE
     Dosage: UNK, AS NEEDED
  2. CALENDULA CREAM (CALENDULA OFFICINALIS FLOWERING TOP) [Suspect]
     Active Substance: CALENDULA OFFICINALIS FLOWERING TOP
     Indication: PAIN OF SKIN
  3. CALENDULA CREAM (CALENDULA OFFICINALIS FLOWERING TOP) [Suspect]
     Active Substance: CALENDULA OFFICINALIS FLOWERING TOP
     Indication: RADIATION ASSOCIATED PAIN
     Dosage: UNK, 2X/DAY
     Route: 061
     Dates: start: 201904, end: 20190419
  4. MOTRIN [Concomitant]
     Active Substance: IBUPROFEN
     Dosage: UNK, AS NEEDED
  5. HYDROCODONE [Concomitant]
     Active Substance: HYDROCODONE

REACTIONS (8)
  - Application site burn [Recovering/Resolving]
  - Pain [Unknown]
  - Skin tightness [Unknown]
  - Musculoskeletal stiffness [Unknown]
  - Depression [Unknown]
  - Dysphagia [Unknown]
  - Suicidal ideation [Unknown]
  - Skin discolouration [Unknown]

NARRATIVE: CASE EVENT DATE: 2019
